FAERS Safety Report 14487971 (Version 2)
Quarter: 2018Q1

REPORT INFORMATION
  Report Type: Spontaneous
  Country: DE (occurrence: DE)
  Receive Date: 20180205
  Receipt Date: 20180227
  Transmission Date: 20180509
  Serious: Yes (Hospitalization)
  Sender: FDA-Public Use
  Company Number: PHHY2018DE015041

PATIENT
  Age: 88 Year
  Sex: Female
  Weight: 58 kg

DRUGS (2)
  1. ESTRAMON [Suspect]
     Active Substance: ESTRADIOL
     Indication: HORMONE REPLACEMENT THERAPY
     Dosage: 25 UG, QID (PER 24 HOURS)
     Route: 062
     Dates: start: 201709
  2. ESTRAMON [Suspect]
     Active Substance: ESTRADIOL
     Dosage: REDUCED DOSE
     Route: 065

REACTIONS (6)
  - Nausea [Unknown]
  - Malaise [Recovering/Resolving]
  - Blood pressure increased [Unknown]
  - Restlessness [Recovering/Resolving]
  - Tremor [Recovering/Resolving]
  - Depression [Unknown]
